FAERS Safety Report 14070422 (Version 2)
Quarter: 2018Q2

REPORT INFORMATION
  Report Type: Spontaneous
  Country: FR (occurrence: FR)
  Receive Date: 20171010
  Receipt Date: 20180523
  Transmission Date: 20180711
  Serious: Yes (Other)
  Sender: FDA-Public Use
  Company Number: FR-MERCK KGAA-2029486

PATIENT
  Age: 46 Year
  Sex: Female

DRUGS (1)
  1. NOVOTHYROX [Suspect]
     Active Substance: LEVOTHYROXINE SODIUM
     Indication: HYPOTHYROIDISM
     Route: 048
     Dates: start: 201706

REACTIONS (24)
  - Depressed mood [Unknown]
  - Asthenia [None]
  - Aggression [None]
  - Sleep disorder [None]
  - Abnormal behaviour [None]
  - Malaise [None]
  - Emotional poverty [None]
  - Impaired work ability [None]
  - Marital problem [None]
  - Emotional disorder [None]
  - Fatigue [Unknown]
  - Irritability [None]
  - Social problem [None]
  - Diffuse alopecia [Unknown]
  - Blood thyroid stimulating hormone normal [Unknown]
  - Mood altered [None]
  - Headache [None]
  - Loss of personal independence in daily activities [None]
  - Gait disturbance [None]
  - Muscle spasms [Recovered/Resolved]
  - Anxiety [None]
  - Insomnia [Unknown]
  - Loss of libido [None]
  - Personal relationship issue [None]

NARRATIVE: CASE EVENT DATE: 2017
